FAERS Safety Report 6126333-9 (Version None)
Quarter: 2009Q1

REPORT INFORMATION
  Report Type: 
  Country: None (occurrence: None)
  Receive Date: 20090320
  Receipt Date: 20090316
  Transmission Date: 20090719
  Serious: Yes (Hospitalization, Other)
  Sender: FDA-Public Use
  Company Number: US-ELI_LILLY_AND_COMPANY-US200903004154

PATIENT
  Sex: Male

DRUGS (7)
  1. HUMULIN N [Suspect]
  2. PRAVACHOL [Concomitant]
     Dosage: 40 MG, UNK
  3. ZANTAC [Concomitant]
  4. ASPIRIN [Concomitant]
  5. LASIX [Concomitant]
  6. METFORMIN HCL [Concomitant]
  7. TOPROL-XL [Concomitant]

REACTIONS (2)
  - STENT PLACEMENT [None]
  - VASCULAR GRAFT [None]
